FAERS Safety Report 5040958-3 (Version None)
Quarter: 2006Q2

REPORT INFORMATION
  Report Type: 
  Country: None (occurrence: None)
  Receive Date: 20060601
  Receipt Date: 20060306
  Transmission Date: 20061013
  Serious: No
  Sender: FDA-Public Use
  Company Number: 2006PV009793

PATIENT
  Age: 52 Year
  Sex: Female
  Weight: 99.3377 kg

DRUGS (5)
  1. BYETTA [Suspect]
     Indication: DIABETES MELLITUS NON-INSULIN-DEPENDENT
     Dosage: 10 MCG;QPM;SC
     Route: 058
     Dates: start: 20060224
  2. METFORMIN [Concomitant]
  3. INSULIN [Concomitant]
  4. AVANDIA [Concomitant]
  5. GLUCOVANCE [Concomitant]

REACTIONS (3)
  - DRUG INEFFECTIVE [None]
  - HAEMATOCHEZIA [None]
  - NAUSEA [None]
